FAERS Safety Report 20514697 (Version 1)
Quarter: 2022Q1

REPORT INFORMATION
  Report Type: Spontaneous
  Country: FR (occurrence: FR)
  Receive Date: 20220224
  Receipt Date: 20220224
  Transmission Date: 20220423
  Serious: Yes (Hospitalization)
  Sender: FDA-Public Use
  Company Number: None

PATIENT
  Age: 61 Year
  Sex: Male
  Weight: 65 kg

DRUGS (5)
  1. CLARITHROMYCIN [Suspect]
     Active Substance: CLARITHROMYCIN
     Indication: Mycobacterial infection
     Dosage: 500 MG, QD
     Route: 048
     Dates: start: 20220204, end: 20220208
  2. PYRAZINAMIDE [Suspect]
     Active Substance: PYRAZINAMIDE
     Indication: Mycobacterial infection
     Dosage: 2 G, Q48H
     Route: 048
     Dates: start: 20220125, end: 20220208
  3. ETHAMBUTOL HYDROCHLORIDE [Suspect]
     Active Substance: ETHAMBUTOL HYDROCHLORIDE
     Indication: Mycobacterial infection
     Dosage: 1 G, Q48H
     Route: 048
     Dates: start: 20220125, end: 20220208
  4. RIMIFON [Suspect]
     Active Substance: ISONIAZID
     Indication: Mycobacterial infection
     Dosage: 300 MG, QD
     Route: 048
     Dates: start: 20220125, end: 20220208
  5. RIFAMPIN [Suspect]
     Active Substance: RIFAMPIN
     Indication: Mycobacterial infection
     Dosage: 900 MG, QD
     Route: 048
     Dates: start: 20220125, end: 20220208

REACTIONS (2)
  - Pancreatitis acute [Not Recovered/Not Resolved]
  - Agranulocytosis [Recovered/Resolved]

NARRATIVE: CASE EVENT DATE: 20220130
